FAERS Safety Report 14084212 (Version 2)
Quarter: 2017Q4

REPORT INFORMATION
  Report Type: Spontaneous
  Country: ES (occurrence: ES)
  Receive Date: 20171013
  Receipt Date: 20171020
  Transmission Date: 20180321
  Serious: Yes (Death, Hospitalization)
  Sender: FDA-Public Use
  Company Number: ES-B.I. PHARMACEUTICALS,INC./RIDGEFIELD-2017-BI-055032

PATIENT
  Age: 75 Year
  Sex: Male

DRUGS (5)
  1. ALPRAZOLAN [Concomitant]
     Active Substance: ALPRAZOLAM
     Indication: PRODUCT USED FOR UNKNOWN INDICATION
     Route: 065
  2. ZOLPIDEM [Concomitant]
     Active Substance: ZOLPIDEM\ZOLPIDEM TARTRATE
     Indication: PRODUCT USED FOR UNKNOWN INDICATION
     Route: 065
  3. PRADAXA [Suspect]
     Active Substance: DABIGATRAN ETEXILATE MESYLATE
     Indication: ATRIAL FIBRILLATION
     Route: 065
  4. TRANGOREX [Concomitant]
     Active Substance: AMIODARONE HYDROCHLORIDE
     Indication: PRODUCT USED FOR UNKNOWN INDICATION
     Route: 065
  5. SUTRIL [Concomitant]
     Active Substance: TORSEMIDE
     Indication: PRODUCT USED FOR UNKNOWN INDICATION
     Route: 065

REACTIONS (8)
  - Injury [Unknown]
  - Multiple organ dysfunction syndrome [Fatal]
  - Renal failure [Unknown]
  - Splenic rupture [Unknown]
  - Bronchitis [Unknown]
  - Coagulopathy [Unknown]
  - Peritoneal haemorrhage [Not Recovered/Not Resolved]
  - Hypovolaemic shock [Unknown]

NARRATIVE: CASE EVENT DATE: 2016
